FAERS Safety Report 5110878-4 (Version None)
Quarter: 2006Q3

REPORT INFORMATION
  Report Type: 
  Country: None (occurrence: None)
  Receive Date: 20060918
  Receipt Date: 20060911
  Transmission Date: 20061208
  Serious: Yes (Death)
  Sender: FDA-Public Use
  Company Number: HQWYE529127JAN06

PATIENT
  Age: 47 Year
  Sex: Male

DRUGS (3)
  1. RAPAMUNE [Suspect]
     Indication: IMMUNOSUPPRESSION
     Dosage: ORAL
     Route: 048
     Dates: start: 20050101
  2. PREDNISOLONE [Concomitant]
  3. CELLCEPT [Concomitant]

REACTIONS (1)
  - SUDDEN CARDIAC DEATH [None]
